FAERS Safety Report 17830642 (Version 1)
Quarter: 2020Q2

REPORT INFORMATION
  Report Type: Spontaneous
  Country: US (occurrence: US)
  Receive Date: 20200527
  Receipt Date: 20200527
  Transmission Date: 20200714
  Serious: No
  Sender: FDA-Public Use
  Company Number: US-TARO-2020TAR00087

PATIENT

DRUGS (1)
  1. TERCONAZOLE VAGINAL CREAM 0.8% [Suspect]
     Active Substance: TERCONAZOLE
     Indication: VULVOVAGINAL BURNING SENSATION
     Dosage: UNK UNK, DAILY (1 APPLICATOR/DAY)
     Route: 067
     Dates: start: 20200110, end: 20200111

REACTIONS (5)
  - Discomfort [Recovering/Resolving]
  - Chemical burn [Recovering/Resolving]
  - Application site pain [Recovering/Resolving]
  - Application site burn [Recovering/Resolving]
  - Device issue [Recovering/Resolving]

NARRATIVE: CASE EVENT DATE: 20200110
